FAERS Safety Report 8842222 (Version 1)
Quarter: 2012Q4

REPORT INFORMATION
  Report Type: 
  Country: JP (occurrence: JP)
  Receive Date: 20121016
  Receipt Date: 20121016
  Transmission Date: 20130627
  Serious: Yes (Disabling)
  Sender: FDA-Public Use
  Company Number: JP-SANOFI-AVENTIS-2012SA075025

PATIENT
  Age: 87 Year
  Sex: Male

DRUGS (3)
  1. ELPLAT [Suspect]
     Indication: LARGE INTESTINE CARCINOMA
     Route: 041
     Dates: start: 20120301
  2. CALCIUM LEVOFOLINATE [Concomitant]
     Dates: start: 20120301
  3. 5-FU [Concomitant]
     Dates: start: 20120301

REACTIONS (1)
  - Atrioventricular block complete [Unknown]
